FAERS Safety Report 5585969-4 (Version None)
Quarter: 2007Q4

REPORT INFORMATION
  Report Type: 
  Country: None (occurrence: None)
  Receive Date: 20071205
  Receipt Date: 20070207
  Transmission Date: 20080405
  Serious: Yes (Other)
  Sender: FDA-Public Use
  Company Number: HQWYE094108FEB07

PATIENT
  Age: 18 Year
  Sex: Female
  Weight: 90.8 kg

DRUGS (1)
  1. EFFEXOR XR [Suspect]
     Indication: DEPRESSION
     Dosage: 75 MG 1X PER 1 DAY, ORAL
     Route: 048
     Dates: start: 20061001

REACTIONS (2)
  - ANGER [None]
  - SUICIDAL IDEATION [None]
